FAERS Safety Report 5838762-9 (Version None)
Quarter: 2008Q3

REPORT INFORMATION
  Report Type: 
  Country: None (occurrence: None)
  Receive Date: 20080808
  Receipt Date: 20080731
  Transmission Date: 20090109
  Serious: Yes (Disabling)
  Sender: FDA-Public Use
  Company Number: DE-ABBOTT-08P-062-0469345-00

PATIENT
  Sex: Female

DRUGS (2)
  1. HUMIRA [Suspect]
     Indication: DRUG USE FOR UNKNOWN INDICATION
     Dates: start: 20060501
  2. METHOTREXATE [Concomitant]
     Indication: DRUG USE FOR UNKNOWN INDICATION

REACTIONS (2)
  - GRIP STRENGTH DECREASED [None]
  - HAND FRACTURE [None]
